FAERS Safety Report 5759261-9 (Version None)
Quarter: 2008Q2

REPORT INFORMATION
  Report Type: 
  Country: None (occurrence: None)
  Receive Date: 20080604
  Receipt Date: 20080603
  Transmission Date: 20081010
  Serious: Yes (Life-Threatening, Hospitalization)
  Sender: FDA-Public Use
  Company Number: DE-MERCK-0805DEU00077

PATIENT
  Age: 77 Year
  Sex: Male
  Weight: 70 kg

DRUGS (5)
  1. JANUVIA [Suspect]
     Indication: TYPE 2 DIABETES MELLITUS
     Route: 048
     Dates: start: 20080410, end: 20080412
  2. METFORMIN [Concomitant]
     Indication: TYPE 2 DIABETES MELLITUS
     Route: 065
     Dates: end: 20080401
  3. TORSEMIDE [Concomitant]
     Indication: HYPERTENSION
     Route: 065
  4. RAMIPRIL [Concomitant]
     Indication: HYPERTENSION
     Route: 065
  5. AMLODIPINE BESYLATE [Concomitant]
     Indication: HYPERTENSION
     Route: 065

REACTIONS (1)
  - HYPOKALAEMIA [None]
